FAERS Safety Report 20573376 (Version 2)
Quarter: 2022Q1

REPORT INFORMATION
  Report Type: Spontaneous
  Country: US (occurrence: US)
  Receive Date: 20220309
  Receipt Date: 20220317
  Transmission Date: 20220423
  Serious: Yes (Hospitalization)
  Sender: FDA-Public Use
  Company Number: US-VERTEX PHARMACEUTICALS-2022-003819

PATIENT
  Age: 39 Year
  Sex: Male

DRUGS (1)
  1. TRIKAFTA [Suspect]
     Active Substance: ELEXACAFTOR\IVACAFTOR\TEZACAFTOR
     Indication: Cystic fibrosis
     Dosage: UNKNOWN
     Route: 048
     Dates: start: 20200101

REACTIONS (5)
  - Psychotic disorder [Recovered/Resolved]
  - Product dose omission issue [Unknown]
  - Cough [Unknown]
  - Sputum increased [Unknown]
  - Paranoia [Unknown]

NARRATIVE: CASE EVENT DATE: 20220222
